FAERS Safety Report 9193341 (Version 2)
Quarter: 2013Q3

REPORT INFORMATION
  Report Type: Report from Study
  Country: US (occurrence: US)
  Receive Date: 20120703
  Receipt Date: 20130820
  Transmission Date: 20140515
  Serious: Yes (Other)
  Sender: FDA-Public Use
  Company Number: PHEH2012US008458

PATIENT
  Age: 49 Year
  Sex: Female

DRUGS (15)
  1. GILENYA [Suspect]
     Indication: MULTIPLE SCLEROSIS
     Dosage: 0.5 MG, QD
     Route: 048
     Dates: start: 201111, end: 20120410
  2. FENTANYL [Concomitant]
     Dosage: 12 MG, UNK
  3. OXYBUTYNIN [Concomitant]
  4. OMEPRAZOLE [Concomitant]
  5. HYDROCODONE W/ACETAMINOPHEN [Concomitant]
  6. AMANTADINE [Concomitant]
  7. VITAMIN D [Concomitant]
     Dosage: 200 MG, UNK
  8. VALIUM [Concomitant]
  9. AVONEX [Concomitant]
     Dosage: 30 UG, UNK
  10. GABAPENTIN [Concomitant]
     Dosage: 100 MG, QD
  11. HYDROCODONE [Concomitant]
     Dosage: 500 MG, UNK
  12. RANITIDINE [Concomitant]
     Dosage: 300 MG, QD
  13. BECLOMETHASONE DIPROPIONATE [Concomitant]
     Dosage: 40 UG, BID
  14. MIRTAZAPINE [Concomitant]
     Dosage: 30 MG, QD
  15. B COMPLEX B12 [Concomitant]

REACTIONS (14)
  - Breast cancer [Unknown]
  - Cataract [Unknown]
  - Blindness [Unknown]
  - Secondary progressive multiple sclerosis [Unknown]
  - Uhthoff^s phenomenon [Unknown]
  - Migraine without aura [Unknown]
  - Nausea [Unknown]
  - Vomiting [Unknown]
  - Headache [Unknown]
  - Immunodeficiency [Unknown]
  - Red blood cell count decreased [Unknown]
  - White blood cell count decreased [Unknown]
  - Lymphopenia [Unknown]
  - Neutropenia [Unknown]
